FAERS Safety Report 14242054 (Version 2)
Quarter: 2018Q4

REPORT INFORMATION
  Report Type: Spontaneous
  Country: US (occurrence: US)
  Receive Date: 20171201
  Receipt Date: 20181120
  Transmission Date: 20190204
  Serious: Yes (Hospitalization, Other)
  Sender: FDA-Public Use
  Company Number: US-TEVA-814706USA

PATIENT
  Age: 68 Year
  Sex: Male

DRUGS (5)
  1. CLOZAPINE. [Suspect]
     Active Substance: CLOZAPINE
     Indication: DEMENTIA
     Dosage: 125MG AT 12; 100MG HS
     Route: 065
  2. CLOZAPINE. [Suspect]
     Active Substance: CLOZAPINE
     Indication: ABNORMAL BEHAVIOUR
  3. DEPAKOTE [Concomitant]
     Active Substance: DIVALPROEX SODIUM
     Dosage: 250 MG; 375MG HS
  4. XANAX [Concomitant]
     Active Substance: ALPRAZOLAM
  5. MELATONIN [Concomitant]
     Active Substance: MELATONIN
     Dosage: 1MG HS

REACTIONS (1)
  - Frontotemporal dementia [Not Recovered/Not Resolved]

NARRATIVE: CASE EVENT DATE: 20171005
